FAERS Safety Report 11003385 (Version 1)
Quarter: 2015Q2

REPORT INFORMATION
  Report Type: Spontaneous
  Country: US (occurrence: US)
  Receive Date: 20150409
  Receipt Date: 20150409
  Transmission Date: 20150821
  Serious: Yes (Hospitalization)
  Sender: FDA-Public Use
  Company Number: US-ROCHE-1561826

PATIENT
  Age: 92 Year
  Sex: Male

DRUGS (3)
  1. TAMIFLU [Suspect]
     Active Substance: OSELTAMIVIR PHOSPHATE
     Indication: PROPHYLAXIS
     Dosage: 14 DAY COURSE
     Route: 065
     Dates: start: 201412
  2. ZOCOR [Concomitant]
     Active Substance: SIMVASTATIN
     Indication: BLOOD CHOLESTEROL
     Route: 065
  3. WARFARIN [Concomitant]
     Active Substance: WARFARIN

REACTIONS (9)
  - Joint injury [Unknown]
  - Laceration [Unknown]
  - Nasal congestion [Recovering/Resolving]
  - Agitation [Unknown]
  - Haemorrhage [Recovered/Resolved]
  - Fungal infection [Not Recovered/Not Resolved]
  - Skin fragility [Unknown]
  - Fall [Unknown]
  - Medication error [Unknown]

NARRATIVE: CASE EVENT DATE: 20150204
